FAERS Safety Report 6291599-1 (Version None)
Quarter: 2009Q3

REPORT INFORMATION
  Report Type: 
  Country: None (occurrence: None)
  Receive Date: 20090730
  Receipt Date: 20090730
  Transmission Date: 20100115
  Serious: Yes (Other)
  Sender: FDA-Public Use
  Company Number: None

PATIENT
  Age: 59 Year
  Sex: Female
  Weight: 51.7101 kg

DRUGS (2)
  1. PHENAZOPYRIDINE 200 MG BOCA [Suspect]
     Indication: DYSURIA
     Dosage: 1 TABLET TID PRN URINARY DI PO
     Route: 048
     Dates: start: 20070914, end: 20090610
  2. PHENAZOPYRIDINE 200 MG BOCA [Suspect]
     Indication: HYPERTONIC BLADDER
     Dosage: 1 TABLET TID PRN URINARY DI PO
     Route: 048
     Dates: start: 20070914, end: 20090610

REACTIONS (1)
  - ANAEMIA [None]
